FAERS Safety Report 6336545-7 (Version None)
Quarter: 2009Q3

REPORT INFORMATION
  Report Type: 
  Country: None (occurrence: None)
  Receive Date: 20090831
  Receipt Date: 20090831
  Transmission Date: 20100115
  Serious: Yes (Other)
  Sender: FDA-Public Use
  Company Number: None

PATIENT
  Age: 42 Year
  Sex: Female
  Weight: 68.0396 kg

DRUGS (3)
  1. AMPHETAMINE SULFATE [Suspect]
     Indication: ATTENTION DEFICIT/HYPERACTIVITY DISORDER
     Dosage: 20 MG 1 X DAY PO
     Route: 048
     Dates: start: 20090614, end: 20090829
  2. ADDERALL 10 [Concomitant]
  3. WELLBUTRIN/ALZAZOPRAM [Concomitant]

REACTIONS (8)
  - ACTIVITIES OF DAILY LIVING IMPAIRED [None]
  - ARRHYTHMIA [None]
  - IMPAIRED DRIVING ABILITY [None]
  - INSOMNIA [None]
  - MUSCLE TWITCHING [None]
  - PRODUCT MEASURED POTENCY ISSUE [None]
  - PRODUCT QUALITY ISSUE [None]
  - TABLET ISSUE [None]
